FAERS Safety Report 11090548 (Version 1)
Quarter: 2015Q2

REPORT INFORMATION
  Report Type: Spontaneous
  Country: None (occurrence: None)
  Receive Date: 20150504
  Receipt Date: 20150504
  Transmission Date: 20150821
  Serious: No
  Sender: FDA-Public Use
  Company Number: None

PATIENT
  Age: 12 Month
  Sex: Female
  Weight: 9.53 kg

DRUGS (1)
  1. BABY TEETHING [Suspect]
     Active Substance: ARABICA COFFEE BEAN\ATROPA BELLADONNA\CALCIUM PHOSPHATE\CHAMOMILE
     Indication: TEETHING
     Dosage: 2-3 TABLETS 4X A DAY THREE TIMES DAILY TAKEN BY MOUTH
     Route: 048
     Dates: start: 20150428, end: 20150430

REACTIONS (4)
  - Constipation [None]
  - Flushing [None]
  - Product formulation issue [None]
  - Irritability [None]

NARRATIVE: CASE EVENT DATE: 20150501
